FAERS Safety Report 12398343 (Version 1)
Quarter: 2016Q2

REPORT INFORMATION
  Report Type: Spontaneous
  Country: US (occurrence: None)
  Receive Date: 20160523
  Receipt Date: 20160523
  Transmission Date: 20160815
  Serious: Yes (Hospitalization)
  Sender: FDA-Public Use
  Company Number: None

PATIENT
  Age: 81 Year
  Sex: Male
  Weight: 73 kg

DRUGS (1)
  1. IXAZOMIB, 4 MG [Suspect]
     Active Substance: IXAZOMIB
     Indication: PLASMA CELL MYELOMA
     Dosage: 4 MG DAY 1, 8 15 EVERY ORAL
     Route: 048
     Dates: start: 20160127, end: 20160513

REACTIONS (2)
  - Plasma cell myeloma [None]
  - Subdural haematoma [None]

NARRATIVE: CASE EVENT DATE: 20160513
